FAERS Safety Report 8188258-7 (Version None)
Quarter: 2012Q1

REPORT INFORMATION
  Report Type: 
  Country: None (occurrence: None)
  Receive Date: 20120306
  Receipt Date: 20120302
  Transmission Date: 20120608
  Serious: Yes (Hospitalization, Congenital Anomaly, Other)
  Sender: FDA-Public Use
  Company Number: US-PFIZER INC-2011289830

PATIENT
  Sex: Female
  Weight: 2.8 kg

DRUGS (15)
  1. ZOFRAN [Concomitant]
     Indication: HYPEREMESIS GRAVIDARUM
     Dosage: UNK
     Route: 064
     Dates: start: 20091214, end: 20091218
  2. VITAMIN D [Concomitant]
     Indication: VITAMIN SUPPLEMENTATION
     Dosage: UNK
     Route: 064
     Dates: start: 20100119
  3. AMOXICILLIN [Concomitant]
     Indication: URINARY TRACT INFECTION
     Dosage: 500 MG, 2X/DAY (FOR NEXT 7 DAYS AFTER SULPHA DS)
     Route: 064
     Dates: start: 20100101, end: 20100101
  4. AZITHROMYCIN [Concomitant]
     Indication: OROPHARYNGEAL PAIN
     Dosage: UNK
     Route: 064
     Dates: start: 20091026
  5. ZOLOFT [Suspect]
     Indication: ANXIETY
     Dosage: 100 MG, 1X/DAY
     Route: 064
     Dates: start: 20100107
  6. PROMETHAZINE [Concomitant]
     Indication: NAUSEA
     Dosage: UNK
     Route: 064
     Dates: start: 20091214
  7. ZOLOFT [Suspect]
     Indication: DEPRESSION
     Dosage: 150 MG, UNK
     Route: 064
     Dates: start: 20090825
  8. ZOLOFT [Suspect]
     Dosage: 150 MG, 1X/DAY
     Route: 064
     Dates: start: 20100430
  9. BACTRIM DS [Concomitant]
     Indication: URINARY TRACT INFECTION
     Dosage: TWICE DAILY FOR 7 DAYS
     Route: 064
     Dates: start: 20100223, end: 20100101
  10. ACETYLSALICYLIC ACID [Concomitant]
     Dosage: UNK
     Route: 064
     Dates: start: 20091218
  11. REGLAN [Concomitant]
     Indication: NAUSEA
     Dosage: 10 MG, UNK
     Route: 064
     Dates: start: 20091229
  12. ZOLOFT [Suspect]
     Indication: AFFECTIVE DISORDER
     Dosage: 200 MG, 1X/DAY
     Route: 064
  13. SERTRALINE HYDROCHLORIDE [Concomitant]
     Dosage: UNK
     Route: 064
     Dates: start: 20090812
  14. MULTI-VITAMINS [Concomitant]
     Dosage: UNK
     Route: 064
     Dates: start: 20090825
  15. FERROUS SULFATE TAB [Concomitant]
     Indication: ANAEMIA
     Dosage: UNK
     Route: 064
     Dates: start: 20100513

REACTIONS (6)
  - PREMATURE BABY [None]
  - CRANIOSYNOSTOSIS [None]
  - BREECH PRESENTATION [None]
  - MATERNAL DRUGS AFFECTING FOETUS [None]
  - MATERNAL EXPOSURE TIMING UNSPECIFIED [None]
  - FEEDING DISORDER NEONATAL [None]
